FAERS Safety Report 25489787 (Version 1)
Quarter: 2025Q2

REPORT INFORMATION
  Report Type: Spontaneous
  Country: CN (occurrence: CN)
  Receive Date: 20250627
  Receipt Date: 20250627
  Transmission Date: 20250717
  Serious: Yes (Life-Threatening, Hospitalization)
  Sender: PFIZER
  Company Number: CN-PFIZER INC-PV202500075822

PATIENT
  Age: 56 Year
  Sex: Male

DRUGS (2)
  1. CYTARABINE [Suspect]
     Active Substance: CYTARABINE
     Indication: Acute myeloid leukaemia
     Dosage: 30 MG, Q12H
     Route: 058
     Dates: start: 20250529, end: 20250602
  2. SODIUM CHLORIDE [Concomitant]
     Active Substance: SODIUM CHLORIDE
     Indication: Vehicle solution use
     Dosage: 1 ML, 2X/DAY
     Route: 058
     Dates: start: 20250529, end: 20250602

REACTIONS (6)
  - Myelosuppression [Unknown]
  - Platelet count decreased [Unknown]
  - Pyrexia [Unknown]
  - Cardiac disorder [Unknown]
  - Tachypnoea [Unknown]
  - Condition aggravated [Unknown]

NARRATIVE: CASE EVENT DATE: 20250606
